FAERS Safety Report 5420363-8 (Version None)
Quarter: 2007Q3

REPORT INFORMATION
  Report Type: 
  Country: None (occurrence: None)
  Receive Date: 20070815
  Receipt Date: 20070720
  Transmission Date: 20080115
  Serious: Yes (Other)
  Sender: FDA-Public Use
  Company Number: 687/6036199

PATIENT
  Age: 38 Year
  Sex: Male

DRUGS (3)
  1. FLUCONAZOLE, INTRAVENOUS INFUSION [Suspect]
     Indication: ORAL CANDIDIASIS
     Dosage: 400 MG
  2. VANCOMYCIN [Concomitant]
  3. IMIPENEM [Concomitant]

REACTIONS (1)
  - ADRENAL INSUFFICIENCY [None]
